FAERS Safety Report 8139345-0 (Version None)
Quarter: 2012Q1

REPORT INFORMATION
  Report Type: 
  Country: None (occurrence: None)
  Receive Date: 20120215
  Receipt Date: 20120211
  Transmission Date: 20120608
  Serious: Yes (Other)
  Sender: FDA-Public Use
  Company Number: US-PFIZER INC-2012037333

PATIENT
  Sex: Female
  Weight: 97.506 kg

DRUGS (3)
  1. PRISTIQ [Suspect]
     Indication: DEPRESSION
     Dosage: 50 MG, 1X/DAY
     Route: 048
     Dates: start: 20110601
  2. KLONOPIN [Concomitant]
     Dosage: UNK, 1X/DAY
  3. DITROPAN [Concomitant]
     Dosage: UNK

REACTIONS (8)
  - DYSGRAPHIA [None]
  - FALL [None]
  - GAIT DISTURBANCE [None]
  - BALANCE DISORDER [None]
  - MOTOR DYSFUNCTION [None]
  - WEIGHT INCREASED [None]
  - DYSSTASIA [None]
  - DYSARTHRIA [None]
